FAERS Safety Report 21669030 (Version 1)
Quarter: 2022Q4

REPORT INFORMATION
  Report Type: Spontaneous
  Country: JP (occurrence: JP)
  Receive Date: 20221201
  Receipt Date: 20221201
  Transmission Date: 20230112
  Serious: Yes (Other)
  Sender: FDA-Public Use
  Company Number: JP-BAXTER-2022BAX025823

PATIENT
  Sex: Female

DRUGS (1)
  1. DOXORUBICIN [Suspect]
     Active Substance: DOXORUBICIN
     Indication: Neoplasm malignant
     Dosage: DOSE UNKNOWN, DOSAGE FORM- SOLUTION FOR INFUSION
     Route: 042

REACTIONS (9)
  - Sclerema [Unknown]
  - Lymphoedema [Unknown]
  - Dysphonia [Unknown]
  - Musculoskeletal stiffness [Unknown]
  - Musculoskeletal discomfort [Unknown]
  - Pain [Unknown]
  - Insomnia [Unknown]
  - Throat tightness [Unknown]
  - Skin discolouration [Unknown]

NARRATIVE: CASE EVENT DATE: 20221101
